FAERS Safety Report 5466998-8 (Version None)
Quarter: 2007Q3

REPORT INFORMATION
  Report Type: 
  Country: None (occurrence: None)
  Receive Date: 20070925
  Receipt Date: 20070924
  Transmission Date: 20080115
  Serious: Yes (Other)
  Sender: FDA-Public Use
  Company Number: A0664891A

PATIENT
  Age: 31 Year
  Sex: Female
  Weight: 68 kg

DRUGS (2)
  1. SERETIDE [Suspect]
     Indication: BRONCHITIS
     Route: 055
     Dates: start: 20040101, end: 20070708
  2. AEROLIN [Concomitant]
     Dates: start: 20070709

REACTIONS (2)
  - APNOEA [None]
  - PHARMACEUTICAL PRODUCT COMPLAINT [None]
